FAERS Safety Report 20774327 (Version 1)
Quarter: 2022Q2

REPORT INFORMATION
  Report Type: Spontaneous
  Country: CA (occurrence: CA)
  Receive Date: 20220502
  Receipt Date: 20220502
  Transmission Date: 20220721
  Serious: Yes (Other)
  Sender: FDA-Public Use
  Company Number: CA-TEVA-2022-CA-2031765

PATIENT
  Sex: Male

DRUGS (4)
  1. FENTANYL [Suspect]
     Active Substance: FENTANYL
     Indication: Product used for unknown indication
     Route: 065
  2. DILAUDID [Suspect]
     Active Substance: HYDROMORPHONE HYDROCHLORIDE
     Indication: Product used for unknown indication
     Route: 048
  3. OXYCONTIN [Suspect]
     Active Substance: OXYCODONE HYDROCHLORIDE
     Indication: Pain
     Route: 048
  4. OXYCONTIN [Suspect]
     Active Substance: OXYCODONE HYDROCHLORIDE
     Route: 048

REACTIONS (23)
  - Aggression [Unknown]
  - Anger [Unknown]
  - Anxiety [Unknown]
  - Decreased appetite [Unknown]
  - Diarrhoea [Unknown]
  - Drug dependence [Unknown]
  - Emotional disorder [Unknown]
  - Erectile dysfunction [Unknown]
  - Fatigue [Unknown]
  - Feeling of despair [Unknown]
  - Hypoaesthesia [Unknown]
  - Hypogeusia [Unknown]
  - Infertility male [Unknown]
  - Irritability [Unknown]
  - Libido decreased [Unknown]
  - Mobility decreased [Unknown]
  - Pain [Unknown]
  - Somnolence [Unknown]
  - Suicidal ideation [Unknown]
  - Vomiting [Unknown]
  - Weight decreased [Unknown]
  - Withdrawal syndrome [Unknown]
  - Unevaluable event [Unknown]
